FAERS Safety Report 21994647 (Version 1)
Quarter: 2023Q1

REPORT INFORMATION
  Report Type: Spontaneous
  Country: HU (occurrence: HU)
  Receive Date: 20230215
  Receipt Date: 20230215
  Transmission Date: 20230418
  Serious: Yes (Hospitalization, Other)
  Sender: FDA-Public Use
  Company Number: HU-TAKEDA-2023TUS014436

PATIENT
  Sex: Female

DRUGS (16)
  1. PANTOPRAZOLE [Suspect]
     Active Substance: PANTOPRAZOLE
     Dosage: 40 MG, 1X/DAY (40 MILLIGRAM, QD)
  2. RIBOCICLIB [Suspect]
     Active Substance: RIBOCICLIB
     Indication: HER2 negative breast cancer
     Dosage: 600 MG, 1X/DAY (600 MILLIGRAM, QD)
     Dates: start: 2022, end: 2022
  3. RIBOCICLIB [Suspect]
     Active Substance: RIBOCICLIB
     Dosage: 2 DF (2 DOSAGE FORM)
     Dates: start: 2022, end: 20220801
  4. DOXORUBICIN [Suspect]
     Active Substance: DOXORUBICIN
     Indication: Breast cancer
     Dosage: UNK
     Dates: start: 20160902
  5. HEPA-MERZ [ORNITHINE ASPARTATE] [Concomitant]
     Dosage: UNK
  6. POTASSIUM CHLORIDE [Concomitant]
     Active Substance: POTASSIUM CHLORIDE
     Dosage: 1 G (1 GRAM)
  7. TAMOXIFEN CITRATE [Concomitant]
     Active Substance: TAMOXIFEN CITRATE
     Dosage: UNK
     Dates: start: 20161118
  8. DOCETAXEL [Concomitant]
     Active Substance: DOCETAXEL
     Indication: Breast cancer
     Dosage: UNK
     Dates: start: 20160902
  9. DIETARY SUPPLEMENT\HERBALS\MILK THISTLE [Concomitant]
     Active Substance: DIETARY SUPPLEMENT\HERBALS\MILK THISTLE
     Dosage: 210 MG, 1X/DAY (210 MILLIGRAM, QD)
  10. CYCLOPHOSPHAMIDE [Concomitant]
     Active Substance: CYCLOPHOSPHAMIDE
     Indication: Breast cancer
     Dosage: UNK
     Dates: start: 20160902
  11. URSODIOL [Concomitant]
     Active Substance: URSODIOL
     Dosage: 750 MG, 1X/DAY (750 MILLIGRAM, QD)
  12. ZOLADEX [Concomitant]
     Active Substance: GOSERELIN ACETATE
     Indication: Breast cancer
     Dosage: UNK
     Dates: start: 20160902
  13. ASCORBIC ACID [Concomitant]
     Active Substance: ASCORBIC ACID
     Dosage: 1000 MG (1000 MILLIGRAM)
  14. PREDNISOLONE [Concomitant]
     Active Substance: PREDNISOLONE
     Dosage: 4 MG, WEEKLY (4 MILLIGRAM, 1/WEEK)
  15. PREDNISOLONE [Concomitant]
     Active Substance: PREDNISOLONE
     Dosage: 40 MG, WEEKLY (40 MILLIGRAM, 1/WEEK)
  16. PREDNISOLONE [Concomitant]
     Active Substance: PREDNISOLONE
     Dosage: 16 MG, WEEKLY (16 MILLIGRAM, 1/WEEK)

REACTIONS (11)
  - Alanine aminotransferase increased [Recovering/Resolving]
  - Gamma-glutamyltransferase increased [Recovering/Resolving]
  - Liver injury [Unknown]
  - Aspartate aminotransferase increased [Recovering/Resolving]
  - Neutropenia [Unknown]
  - Asthenia [Unknown]
  - Abdominal discomfort [Unknown]
  - Tremor [Unknown]
  - Haemangioma of liver [Unknown]
  - Renal cyst [Unknown]
  - Uterine leiomyoma [Unknown]

NARRATIVE: CASE EVENT DATE: 20220101
